FAERS Safety Report 16161654 (Version 3)
Quarter: 2025Q4

REPORT INFORMATION
  Report Type: Spontaneous
  Country: AU (occurrence: AU)
  Receive Date: 20190405
  Receipt Date: 20251003
  Transmission Date: 20260118
  Serious: Yes (Death, Life-Threatening, Hospitalization, Other)
  Sender: SANOFI AVENTIS
  Company Number: AU-SA-2019SA093110

PATIENT
  Age: 74 Year
  Sex: Male

DRUGS (7)
  1. METHYLPREDNISOLONE [Suspect]
     Active Substance: METHYLPREDNISOLONE
     Indication: Aortitis
     Dosage: 750 MG
  2. METHYLPREDNISOLONE [Suspect]
     Active Substance: METHYLPREDNISOLONE
     Dosage: UNK, PULSE DOSE
  3. PREDNISOLONE [Suspect]
     Active Substance: PREDNISOLONE
     Indication: Aortitis
     Dosage: 60 MG, QD
  4. CYCLOPHOSPHAMIDE [Suspect]
     Active Substance: CYCLOPHOSPHAMIDE
     Indication: Aortitis
     Dosage: 1000 MG, 1X
     Route: 042
  5. ASPIRIN [Suspect]
     Active Substance: ASPIRIN
     Indication: Antiplatelet therapy
     Dosage: 100 MG, QD
  6. CLOPIDOGREL BISULFATE [Suspect]
     Active Substance: CLOPIDOGREL BISULFATE
     Indication: Antiplatelet therapy
     Dosage: 75 MG, QD
  7. ENOXAPARIN SODIUM [Suspect]
     Active Substance: ENOXAPARIN SODIUM
     Indication: Thrombosis prophylaxis
     Dosage: 40 MG
     Route: 058

REACTIONS (8)
  - Cerebral haemorrhage [Fatal]
  - Circulatory collapse [Fatal]
  - Coma [Fatal]
  - Aortic aneurysm [Recovered/Resolved]
  - Aortitis [Recovered/Resolved]
  - Condition aggravated [Recovered/Resolved]
  - Drug ineffective [Recovered/Resolved]
  - Scedosporium infection [Recovered/Resolved]
